FAERS Safety Report 9776980 (Version 1)
Quarter: 2013Q4

REPORT INFORMATION
  Report Type: Report from Study
  Country: US (occurrence: US)
  Receive Date: 20131221
  Receipt Date: 20131221
  Transmission Date: 20140711
  Serious: Yes (Other)
  Sender: FDA-Public Use
  Company Number: US-ROCHE-1320839

PATIENT
  Sex: Female

DRUGS (2)
  1. AVASTIN [Suspect]
     Indication: AGE-RELATED MACULAR DEGENERATION
     Route: 050
  2. TYLENOL [Concomitant]
     Indication: PAIN

REACTIONS (4)
  - Cataract [Unknown]
  - Abdominal pain upper [Unknown]
  - Nightmare [Unknown]
  - Gastrointestinal ulcer [Not Recovered/Not Resolved]
